FAERS Safety Report 20435709 (Version 2)
Quarter: 2022Q1

REPORT INFORMATION
  Report Type: Report from Study
  Country: US (occurrence: US)
  Receive Date: 20220207
  Receipt Date: 20220215
  Transmission Date: 20220423
  Serious: No
  Sender: FDA-Public Use
  Company Number: US-BEH-2022141774

PATIENT
  Age: 61 Year
  Weight: 104.31 kg

DRUGS (1)
  1. HIZENTRA [Suspect]
     Active Substance: HUMAN IMMUNOGLOBULIN G
     Indication: Primary immunodeficiency syndrome
     Dosage: 8 GRAM, QMT
     Route: 058
     Dates: start: 20220128

REACTIONS (7)
  - Pyrexia [Not Recovered/Not Resolved]
  - Sinusitis [Unknown]
  - Eye infection [Unknown]
  - Hyperhidrosis [Unknown]
  - Dyspnoea exertional [Unknown]
  - No adverse event [Unknown]
  - Off label use [Unknown]

NARRATIVE: CASE EVENT DATE: 20220128
